FAERS Safety Report 5203412-1 (Version None)
Quarter: 2007Q1

REPORT INFORMATION
  Report Type: 
  Country: None (occurrence: None)
  Receive Date: 20070105
  Receipt Date: 20061221
  Transmission Date: 20070707
  Serious: Yes (Congenital Anomaly)
  Sender: FDA-Public Use
  Company Number: 2007SP000068

PATIENT
  Age: 5 Month
  Sex: Male

DRUGS (2)
  1. PEG-INTRON [Suspect]
  2. REBETOL [Suspect]

REACTIONS (4)
  - BODY HEIGHT BELOW NORMAL [None]
  - CHONDRODYSTROPHY [None]
  - DRUG EXPOSURE DURING PREGNANCY [None]
  - PREGNANCY OF PARTNER [None]
